FAERS Safety Report 5891941-7 (Version None)
Quarter: 2008Q3

REPORT INFORMATION
  Report Type: 
  Country: None (occurrence: None)
  Receive Date: 20080922
  Receipt Date: 20080910
  Transmission Date: 20090109
  Serious: Yes (Other)
  Sender: FDA-Public Use
  Company Number: GB-PFIZER INC-2008076964

PATIENT
  Sex: Male

DRUGS (2)
  1. CHANTIX [Suspect]
     Route: 048
  2. ALCOHOL [Suspect]

REACTIONS (3)
  - AGGRESSION [None]
  - HEAD BANGING [None]
  - PERSONALITY CHANGE [None]
